FAERS Safety Report 7438352-0 (Version None)
Quarter: 2011Q2

REPORT INFORMATION
  Report Type: 
  Country: None (occurrence: None)
  Receive Date: 20110426
  Receipt Date: 20110414
  Transmission Date: 20111010
  Serious: Yes (Hospitalization, Other)
  Sender: FDA-Public Use
  Company Number: BR-SANOFI-AVENTIS-2010SA053923

PATIENT
  Age: 36 Year
  Sex: Female
  Weight: 81 kg

DRUGS (9)
  1. LANTUS [Suspect]
     Dosage: 19IU IN THE MORNING AND 19IU AT NIGHT
     Route: 058
     Dates: start: 20100901
  2. LANTUS [Suspect]
     Dosage: 22IU IN THE MORNING AND 22IU AT NIGHT
     Route: 058
     Dates: start: 20100701, end: 20100901
  3. NOVORAPID [Concomitant]
     Indication: TYPE 1 DIABETES MELLITUS
     Route: 058
     Dates: end: 20100701
  4. NOVORAPID [Concomitant]
     Route: 058
     Dates: start: 20100701, end: 20100901
  5. FOLIC ACID [Concomitant]
     Route: 048
     Dates: start: 20100701, end: 20100901
  6. PURAN T4 [Concomitant]
     Indication: THYROID CANCER
     Route: 048
     Dates: start: 20090501
  7. NOVORAPID [Concomitant]
     Route: 058
     Dates: start: 20100901, end: 20100901
  8. LANTUS [Suspect]
     Indication: TYPE 1 DIABETES MELLITUS
     Dosage: 19IU IN THE MORNING AND 19IU AT NIGHT
     Route: 058
     Dates: end: 20100701
  9. OPTIPEN [Suspect]

REACTIONS (4)
  - VAGINAL HAEMORRHAGE [None]
  - INTRA-UTERINE DEATH [None]
  - DRUG EXPOSURE DURING PREGNANCY [None]
  - UTERINE HAEMORRHAGE [None]
